FAERS Safety Report 21172548 (Version 1)
Quarter: 2022Q3

REPORT INFORMATION
  Report Type: Spontaneous
  Country: US (occurrence: US)
  Receive Date: 20220804
  Receipt Date: 20220804
  Transmission Date: 20221027
  Serious: No
  Sender: FDA-Public Use
  Company Number: US-009507513-2207USA007638

PATIENT
  Age: 75 Year
  Sex: Female

DRUGS (3)
  1. MOLNUPIRAVIR [Suspect]
     Active Substance: MOLNUPIRAVIR
     Indication: COVID-19 treatment
     Dosage: TWO CAPSULES 2X DAILY; PRODUCT NAME ALSO REPORTED AS MOLNUPIRAVIR CAPSULE 200 MG 40 CT EUA 000065055
     Route: 048
     Dates: start: 20220717, end: 20220720
  2. MOLNUPIRAVIR [Suspect]
     Active Substance: MOLNUPIRAVIR
     Dosage: FOUR CAPSULES 2X DAILY; PRODUCT NAME ALSO REPORTED AS MOLNUPIRAVIR CAPSULE 200 MG 40 CT EUA 00006505
     Route: 048
     Dates: start: 20220720
  3. LOSARTAN [Concomitant]
     Active Substance: LOSARTAN

REACTIONS (4)
  - Colitis [Recovering/Resolving]
  - Illness [Recovering/Resolving]
  - Blood pressure increased [Unknown]
  - Incorrect dose administered [Unknown]

NARRATIVE: CASE EVENT DATE: 20220701
